FAERS Safety Report 8991247 (Version 1)
Quarter: 2012Q4

REPORT INFORMATION
  Report Type: Report from Study
  Country: CA (occurrence: CA)
  Receive Date: 20121231
  Receipt Date: 20121231
  Transmission Date: 20130627
  Serious: Yes (Other)
  Sender: FDA-Public Use
  Company Number: CA-ROCHE-1165783

PATIENT
  Sex: Female
  Weight: 71 kg

DRUGS (1)
  1. OMALIZUMAB [Suspect]
     Indication: ASTHMA
     Route: 058
     Dates: start: 20061116

REACTIONS (12)
  - Pulmonary congestion [Unknown]
  - Pneumonia [Recovering/Resolving]
  - Arthropod bite [Unknown]
  - Influenza [Unknown]
  - Chest discomfort [Unknown]
  - Respiratory tract congestion [Unknown]
  - Wheezing [Unknown]
  - Fatigue [Unknown]
  - Cough [Unknown]
  - Diarrhoea [Unknown]
  - Hypersensitivity [Unknown]
  - Dyspnoea exertional [Recovering/Resolving]
